FAERS Safety Report 11564610 (Version 3)
Quarter: 2015Q4

REPORT INFORMATION
  Report Type: Spontaneous
  Country: US (occurrence: US)
  Receive Date: 20150916
  Receipt Date: 20151104
  Transmission Date: 20160304
  Serious: No
  Sender: FDA-Public Use
  Company Number: US-ELI_LILLY_AND_COMPANY-US200903005142

PATIENT
  Age: 55 Year
  Sex: Female
  Weight: 52 kg

DRUGS (11)
  1. FORTEO [Suspect]
     Active Substance: TERIPARATIDE
     Indication: OSTEOPENIA
     Dosage: 20 UG, DAILY (1/D)
     Dates: start: 20090317
  2. FORTEO [Suspect]
     Active Substance: TERIPARATIDE
     Dosage: 20 UG, DAILY (1/D)
  3. FORTEO [Suspect]
     Active Substance: TERIPARATIDE
     Dosage: 20 UG, DAILY (1/D)
  4. FORTEO [Suspect]
     Active Substance: TERIPARATIDE
     Dosage: 20 UG, DAILY (1/D)
     Dates: end: 20110318
  5. ESTROGEN NOS [Concomitant]
     Active Substance: ESTROGENS
  6. FORTEO [Suspect]
     Active Substance: TERIPARATIDE
     Dosage: 20 UG, DAILY (1/D)
  7. FORTEO [Suspect]
     Active Substance: TERIPARATIDE
     Dosage: 20 UG, DAILY (1/D)
  8. CITRACAL [Concomitant]
     Active Substance: CALCIUM CITRATE
     Dosage: 500 MG, 3/D
     Dates: start: 20090225, end: 20090303
  9. FORTEO [Suspect]
     Active Substance: TERIPARATIDE
     Dosage: 20 UG, DAILY (1/D)
  10. FORTEO [Suspect]
     Active Substance: TERIPARATIDE
     Dosage: 20 UG, DAILY (1/D)
  11. VITAMINS NOS [Concomitant]
     Active Substance: VITAMINS

REACTIONS (32)
  - Amnesia [Recovered/Resolved]
  - Injection site bruising [Recovering/Resolving]
  - Sleep disorder [Not Recovered/Not Resolved]
  - Ear pain [Unknown]
  - Anxiety [Unknown]
  - Paranoia [Unknown]
  - Thinking abnormal [Not Recovered/Not Resolved]
  - Tremor [Not Recovered/Not Resolved]
  - Off label use [Not Recovered/Not Resolved]
  - Weight increased [Not Recovered/Not Resolved]
  - Drug dose omission [Not Recovered/Not Resolved]
  - Contusion [Unknown]
  - Visual impairment [Unknown]
  - Discomfort [Unknown]
  - Pruritus [Unknown]
  - Laceration [Unknown]
  - Neck pain [Unknown]
  - Dizziness [Unknown]
  - Injection site haemorrhage [Unknown]
  - Stress [Not Recovered/Not Resolved]
  - Visual acuity reduced [Unknown]
  - Alcohol abuse [Unknown]
  - Hangover [Unknown]
  - Paraesthesia [Not Recovered/Not Resolved]
  - Nervousness [Recovered/Resolved]
  - Fatigue [Not Recovered/Not Resolved]
  - Malaise [Unknown]
  - Chest discomfort [Unknown]
  - Medication error [Unknown]
  - Injection site pain [Not Recovered/Not Resolved]
  - Insomnia [Recovered/Resolved]
  - Constipation [Not Recovered/Not Resolved]

NARRATIVE: CASE EVENT DATE: 20090317
